FAERS Safety Report 7442965-X (Version None)
Quarter: 2011Q2

REPORT INFORMATION
  Report Type: 
  Country: None (occurrence: None)
  Receive Date: 20110428
  Receipt Date: 20110425
  Transmission Date: 20111010
  Serious: Yes (Other)
  Sender: FDA-Public Use
  Company Number: ES-MERCK-1104ESP00062

PATIENT
  Age: 17 Year
  Sex: Female

DRUGS (3)
  1. DIPYRONE [Concomitant]
     Route: 048
     Dates: start: 20100923
  2. CYCLOPENTOLATE HYDROCHLORIDE [Concomitant]
     Route: 047
     Dates: start: 20100923
  3. MAXALT [Suspect]
     Indication: MIGRAINE
     Route: 048
     Dates: start: 20101205

REACTIONS (2)
  - HEPATITIS ACUTE [None]
  - OVERDOSE [None]
